FAERS Safety Report 18700502 (Version 1)
Quarter: 2021Q1

REPORT INFORMATION
  Report Type: Spontaneous
  Country: US (occurrence: US)
  Receive Date: 20210104
  Receipt Date: 20210104
  Transmission Date: 20210419
  Serious: No
  Sender: FDA-Public Use
  Company Number: None

PATIENT
  Age: 77 Year
  Sex: Male
  Weight: 76.5 kg

DRUGS (1)
  1. LOW DOSE ASPIRIN [Suspect]
     Active Substance: ASPIRIN
     Indication: ANTICOAGULANT THERAPY
     Dosage: ?          QUANTITY:300 TABLET(S);?
     Route: 048

REACTIONS (2)
  - Dizziness [None]
  - Product odour abnormal [None]

NARRATIVE: CASE EVENT DATE: 20210104
